FAERS Safety Report 5748560-2 (Version None)
Quarter: 2008Q2

REPORT INFORMATION
  Report Type: 
  Country: None (occurrence: None)
  Receive Date: 20080523
  Receipt Date: 20080513
  Transmission Date: 20081010
  Serious: Yes (Life-Threatening, Hospitalization)
  Sender: FDA-Public Use
  Company Number: FR-PFIZER INC-2008042084

PATIENT
  Sex: Male

DRUGS (14)
  1. ALDACTONE [Suspect]
     Route: 048
     Dates: start: 20060414, end: 20060425
  2. FUROSEMIDE [Suspect]
     Route: 042
     Dates: start: 20060414, end: 20060425
  3. HYDROCHLOROTHIAZIDE [Suspect]
     Route: 048
     Dates: start: 20060419, end: 20060425
  4. ZOCOR [Suspect]
     Route: 048
     Dates: start: 20060406, end: 20060424
  5. NEO-MERCAZOLE TAB [Suspect]
     Dosage: DAILY DOSE:2.5MG
     Route: 048
     Dates: start: 20060409, end: 20060424
  6. XATRAL [Suspect]
     Route: 048
     Dates: start: 20060406, end: 20060424
  7. TRIATEC [Suspect]
     Route: 048
     Dates: start: 20060413, end: 20060425
  8. DIFFU K [Suspect]
     Route: 048
     Dates: start: 20060422, end: 20060425
  9. IPRATROPIUM BROMIDE [Suspect]
     Route: 055
  10. OFLOCET [Suspect]
     Route: 048
     Dates: start: 20060413, end: 20060424
  11. VERAPAMIL HYDROCHLORIDE [Suspect]
     Route: 048
     Dates: start: 20060416, end: 20060425
  12. FINASTERIDE [Suspect]
     Route: 048
     Dates: start: 20060418, end: 20060424
  13. BRICANYL [Suspect]
     Route: 055
     Dates: start: 20060419, end: 20060425
  14. TARDYFERON [Suspect]
     Route: 048
     Dates: start: 20060422, end: 20060425

REACTIONS (3)
  - ENCEPHALOPATHY [None]
  - HYPERCAPNIA [None]
  - METABOLIC ALKALOSIS [None]
